FAERS Safety Report 7240742-6 (Version None)
Quarter: 2011Q1

REPORT INFORMATION
  Report Type: 
  Country: None (occurrence: None)
  Receive Date: 20110124
  Receipt Date: 20110112
  Transmission Date: 20110831
  Serious: Yes (Other)
  Sender: FDA-Public Use
  Company Number: CA-US-EMD SERONO, INC.-7027443

PATIENT
  Sex: Female

DRUGS (9)
  1. MICARDIS [Concomitant]
  2. VITAMIN E [Concomitant]
  3. VITAMIN A [Concomitant]
  4. MULTIVITAMIN SENIOR FORMULA [Concomitant]
  5. PANTOLOC [Concomitant]
  6. VITAMIN D [Concomitant]
  7. VITAMIN B [Concomitant]
  8. REBIF [Suspect]
     Indication: RELAPSING-REMITTING MULTIPLE SCLEROSIS
     Dates: start: 20020211
  9. TYLENOL-500 [Concomitant]

REACTIONS (3)
  - CHILLS [None]
  - EYE HAEMORRHAGE [None]
  - HEADACHE [None]
